FAERS Safety Report 6790897-2 (Version None)
Quarter: 2010Q2

REPORT INFORMATION
  Report Type: 
  Country: None (occurrence: None)
  Receive Date: 20100624
  Receipt Date: 20100615
  Transmission Date: 20101027
  Serious: Yes (Death, Hospitalization)
  Sender: FDA-Public Use
  Company Number: B0660687A

PATIENT
  Sex: Female

DRUGS (3)
  1. ARIXTRA [Suspect]
     Dosage: 10MG PER DAY
     Route: 058
     Dates: start: 20100511, end: 20100520
  2. ANTIBIOTIC [Concomitant]
  3. DIURETIC [Concomitant]
     Route: 051

REACTIONS (9)
  - ABDOMINAL PAIN [None]
  - ACUTE MYOCARDIAL INFARCTION [None]
  - HAEMATOMA [None]
  - HYPOVOLAEMIC SHOCK [None]
  - NAUSEA [None]
  - OFF LABEL USE [None]
  - PERITONEAL HAEMATOMA [None]
  - RED BLOOD CELL COUNT DECREASED [None]
  - VOMITING [None]
